FAERS Safety Report 12991472 (Version 1)
Quarter: 2016Q4

REPORT INFORMATION
  Report Type: Spontaneous
  Country: US (occurrence: US)
  Receive Date: 20161201
  Receipt Date: 20161201
  Transmission Date: 20170207
  Serious: No
  Sender: FDA-Public Use
  Company Number: US-ENDO PHARMACEUTICALS INC.-2015-004395

PATIENT
  Age: 65 Year
  Sex: Female
  Weight: 79.45 kg

DRUGS (1)
  1. ALPRAZOLAM TABLETS [Suspect]
     Active Substance: ALPRAZOLAM
     Indication: RESTLESS LEGS SYNDROME
     Route: 065
     Dates: start: 20151104

REACTIONS (6)
  - Restless legs syndrome [Not Recovered/Not Resolved]
  - Tongue biting [Unknown]
  - Nausea [Not Recovered/Not Resolved]
  - Condition aggravated [Not Recovered/Not Resolved]
  - Off label use [Recovered/Resolved]
  - Dyspepsia [Unknown]

NARRATIVE: CASE EVENT DATE: 201511
